FAERS Safety Report 14977907 (Version 1)
Quarter: 2018Q2

REPORT INFORMATION
  Report Type: Spontaneous
  Country: US (occurrence: US)
  Receive Date: 20180515
  Receipt Date: 20180515
  Transmission Date: 20180711
  Serious: Yes (Life-Threatening, Hospitalization, Disabling, Other)
  Sender: FDA-Public Use
  Company Number: None

PATIENT
  Age: 35 Year
  Sex: Male
  Weight: 96.75 kg

DRUGS (7)
  1. CALCITROL [Concomitant]
     Active Substance: CALCITRIOL
  2. AMLODIPINE [Concomitant]
     Active Substance: AMLODIPINE BESYLATE
  3. FISH OIL [Concomitant]
     Active Substance: FISH OIL
  4. CALC ACETATE [Concomitant]
  5. CELESTONE [Suspect]
     Active Substance: BETAMETHASONE
     Indication: LIMB INJURY
     Dosage: ?          OTHER FREQUENCY:1 TIME;?
     Route: 030
     Dates: start: 20170324, end: 20170324
  6. FUROSEMIDE. [Concomitant]
     Active Substance: FUROSEMIDE
  7. LISINOPRIL. [Concomitant]
     Active Substance: LISINOPRIL

REACTIONS (7)
  - Renal failure [None]
  - Nausea [None]
  - Blood sodium increased [None]
  - Chest pain [None]
  - Hypertension [None]
  - Asthenia [None]
  - Dialysis [None]

NARRATIVE: CASE EVENT DATE: 20170326
